FAERS Safety Report 6578502-1 (Version None)
Quarter: 2010Q1

REPORT INFORMATION
  Report Type: 
  Country: None (occurrence: None)
  Receive Date: 20100211
  Receipt Date: 20100208
  Transmission Date: 20100710
  Serious: Yes (Death)
  Sender: FDA-Public Use
  Company Number: PHHY2010BR06620

PATIENT
  Sex: Female

DRUGS (4)
  1. DIOVAN [Suspect]
     Dosage: 160 MG, UNK
  2. DIOVAN [Suspect]
     Dosage: 320 MG, UNK
  3. GENTEAL (NVO) [Suspect]
     Dosage: 10 ML, UNK
     Route: 047
     Dates: start: 20080817
  4. GENTEAL (NVO) [Suspect]
     Dosage: 10 ML, UNK

REACTIONS (5)
  - ARTERIAL OCCLUSIVE DISEASE [None]
  - CARDIAC FAILURE [None]
  - CARDIAC OPERATION [None]
  - CARDIOGENIC SHOCK [None]
  - POST PROCEDURAL COMPLICATION [None]
